FAERS Safety Report 15580372 (Version 1)
Quarter: 2018Q4

REPORT INFORMATION
  Report Type: Other
  Country: US (occurrence: US)
  Receive Date: 20181102
  Receipt Date: 20181102
  Transmission Date: 20190205
  Serious: No
  Sender: FDA-Public Use
  Company Number: US-LEADIANT BIOSCIENCES INC-2018STPI000384

PATIENT
  Sex: Female

DRUGS (3)
  1. ADAGEN [Suspect]
     Active Substance: PEGADEMASE BOVINE
     Dosage: 0.6 ML, BIW
     Route: 030
     Dates: start: 20180814
  2. RANITIDINE. [Concomitant]
     Active Substance: RANITIDINE
  3. ADAGEN [Suspect]
     Active Substance: PEGADEMASE BOVINE
     Indication: COMBINED IMMUNODEFICIENCY
     Dosage: 0.6 ML, BIW
     Route: 030
     Dates: start: 20180503

REACTIONS (2)
  - Injection site haemorrhage [Not Recovered/Not Resolved]
  - Adverse event [Not Recovered/Not Resolved]
